FAERS Safety Report 4268848-4 (Version None)
Quarter: 2004Q1

REPORT INFORMATION
  Report Type: 
  Country: None (occurrence: None)
  Receive Date: 20040108
  Receipt Date: 20031231
  Transmission Date: 20041129
  Serious: No
  Sender: FDA-Public Use
  Company Number: 03P-163-0245590-00

PATIENT
  Age: 49 Year
  Sex: Male

DRUGS (5)
  1. LOPINAVIR/RITONAVIR (LOPINAVIR/RITONAVIR) [Suspect]
     Indication: HIV INFECTION
     Dosage: 3 DOSAGE FORMS, 2 IN 1 D
     Dates: start: 20031021, end: 20031112
  2. STAVUDINE [Suspect]
     Indication: HIV INFECTION
     Dosage: 75 MG, 1 IN 1 D
     Dates: start: 20031021, end: 20031112
  3. EMTRICITABINE [Suspect]
     Indication: HIV INFECTION
     Dosage: 2000 MG, 1 IN 1 D
     Dates: start: 20031021, end: 20031112
  4. FLUCONAZOLE [Concomitant]
  5. ROBITUSSIN-DM [Concomitant]

REACTIONS (4)
  - DISEASE RECURRENCE [None]
  - MENINGITIS CRYPTOCOCCAL [None]
  - NAUSEA [None]
  - VOMITING [None]
